FAERS Safety Report 13517404 (Version 1)
Quarter: 2017Q2

REPORT INFORMATION
  Report Type: Spontaneous
  Country: US (occurrence: US)
  Receive Date: 20170505
  Receipt Date: 20170505
  Transmission Date: 20170830
  Serious: Yes (Hospitalization)
  Sender: FDA-Public Use
  Company Number: US-TARO PHARMACEUTICALS USA.,INC-2017SUN00140

PATIENT
  Age: 68 Year
  Sex: Male

DRUGS (1)
  1. WARFARIN [Suspect]
     Active Substance: WARFARIN
     Indication: ATRIAL FIBRILLATION
     Dosage: 5 MG, UNK
     Route: 065

REACTIONS (6)
  - Red blood cells urine positive [Unknown]
  - Renal artery thrombosis [Unknown]
  - Skin necrosis [Recovering/Resolving]
  - Proteinuria [Unknown]
  - Urinary casts [Unknown]
  - White blood cells urine positive [Unknown]
